FAERS Safety Report 5513196-5 (Version None)
Quarter: 2007Q4

REPORT INFORMATION
  Report Type: 
  Country: None (occurrence: None)
  Receive Date: 20071108
  Receipt Date: 20071024
  Transmission Date: 20080405
  Serious: Yes (Hospitalization, Other)
  Sender: FDA-Public Use
  Company Number: 2007AD000105

PATIENT
  Age: 95 Year
  Sex: Female
  Weight: 88.2 kg

DRUGS (4)
  1. CEPHALEXIN [Suspect]
     Indication: URINARY TRACT INFECTION
     Dosage: 50 MG;TID;PO
     Route: 048
     Dates: start: 20060116, end: 20060118
  2. CO-BENELDOPA [Concomitant]
  3. PARACETAMOL [Concomitant]
  4. QUETIAPINE FUMARATE [Concomitant]

REACTIONS (2)
  - LIP HAEMORRHAGE [None]
  - STEVENS-JOHNSON SYNDROME [None]
